FAERS Safety Report 9741485 (Version 1)
Quarter: 2013Q4

REPORT INFORMATION
  Report Type: Spontaneous
  Country: US (occurrence: US)
  Receive Date: 20131209
  Receipt Date: 20131209
  Transmission Date: 20140711
  Serious: No
  Sender: FDA-Public Use
  Company Number: US-009507513-1312USA002094

PATIENT
  Sex: Male

DRUGS (1)
  1. LIPTRUZET [Suspect]
     Dosage: UNK
     Route: 048
     Dates: start: 201306

REACTIONS (2)
  - Muscular weakness [Unknown]
  - Fatigue [Unknown]
